FAERS Safety Report 8413374-1 (Version None)
Quarter: 2012Q2

REPORT INFORMATION
  Report Type: 
  Country: None (occurrence: None)
  Receive Date: 20120605
  Receipt Date: 20120601
  Transmission Date: 20120825
  Serious: Yes (Other)
  Sender: FDA-Public Use
  Company Number: PHHY2012GB047041

PATIENT
  Age: 84 Year
  Sex: Male

DRUGS (8)
  1. KALMS SLEEP [Suspect]
     Dosage: 3 DF, QD
     Dates: start: 20120501, end: 20120505
  2. CANDESARTAN CILEXETIL [Concomitant]
     Dosage: 4 MG
     Route: 048
     Dates: start: 20080101
  3. OMEPRAZOLE [Concomitant]
     Dosage: 20 MG,
     Route: 048
  4. ZOPICLONE [Concomitant]
     Dosage: 3.75 MG
     Route: 048
     Dates: start: 20080101
  5. SIMVASTATIN [Concomitant]
     Dosage: 20 MG
     Route: 048
     Dates: start: 20080101
  6. ALLOPURINOL [Concomitant]
     Dosage: 300 MG
     Route: 048
     Dates: start: 20100101
  7. WARFARIN SODIUM [Suspect]
     Indication: ATRIAL FIBRILLATION
     Dosage: 5 MG, QD
     Route: 048
  8. DIGOXIN [Concomitant]
     Dosage: 125 UG, UNK
     Route: 048
     Dates: start: 20080101

REACTIONS (2)
  - INTERNATIONAL NORMALISED RATIO DECREASED [None]
  - ENZYME INDUCTION [None]
